FAERS Safety Report 11242287 (Version 1)
Quarter: 2015Q3

REPORT INFORMATION
  Report Type: Not Available
  Country: IN (occurrence: IN)
  Receive Date: 20150707
  Receipt Date: 20150707
  Transmission Date: 20151125
  Serious: No
  Sender: FDA-Public Use
  Company Number: IN-LUPIN PHARMACEUTICALS INC.-E2B_00003472

PATIENT
  Sex: Male

DRUGS (9)
  1. GOODNOCT XR 12.5 MG [Suspect]
     Active Substance: ZOLPIDEM TARTRATE
     Route: 048
  2. MIRNITE 30 [Suspect]
     Active Substance: MIRTAZAPINE
     Route: 048
  3. GOODNOCT XR 12.5 MG [Suspect]
     Active Substance: ZOLPIDEM TARTRATE
     Dosage: 15 TABLETS
     Route: 048
     Dates: start: 20150408, end: 20150408
  4. MIRNITE 30 [Suspect]
     Active Substance: MIRTAZAPINE
     Indication: BIPOLAR DISORDER
     Route: 048
  5. GOODNOCT XR 12.5 MG [Suspect]
     Active Substance: ZOLPIDEM TARTRATE
     Indication: BIPOLAR DISORDER
     Route: 048
  6. NITE 10 [Suspect]
     Active Substance: NITRAZEPAM
     Route: 048
  7. NITE 10 [Suspect]
     Active Substance: NITRAZEPAM
     Indication: BIPOLAR DISORDER
     Route: 048
  8. NITE 10 [Suspect]
     Active Substance: NITRAZEPAM
     Dosage: 15 TABLETS
     Route: 048
     Dates: start: 20150408, end: 20150408
  9. MIRNITE 30 [Suspect]
     Active Substance: MIRTAZAPINE
     Dosage: 15 TABLETS
     Route: 048
     Dates: start: 20150408, end: 20150408

REACTIONS (2)
  - Somnolence [Not Recovered/Not Resolved]
  - Overdose [Unknown]

NARRATIVE: CASE EVENT DATE: 20150408
